FAERS Safety Report 12865492 (Version 2)
Quarter: 2016Q4

REPORT INFORMATION
  Report Type: Spontaneous
  Country: US (occurrence: US)
  Receive Date: 20161020
  Receipt Date: 20161020
  Transmission Date: 20170207
  Serious: No
  Sender: FDA-Public Use
  Company Number: US-PFIZER INC-3187319

PATIENT
  Age: 26 Year
  Sex: Male
  Weight: 58.5 kg

DRUGS (1)
  1. MEPERIDINE HCL [Suspect]
     Active Substance: MEPERIDINE HYDROCHLORIDE
     Indication: PAIN
     Dosage: 25 MG, ONCE
     Route: 042
     Dates: start: 20160223

REACTIONS (4)
  - Expired product administered [Recovered/Resolved]
  - Medication error [Recovered/Resolved]
  - No adverse event [Unknown]
  - Product expiration date issue [Recovered/Resolved]

NARRATIVE: CASE EVENT DATE: 20160223
